FAERS Safety Report 4873114-X (Version None)
Quarter: 2006Q1

REPORT INFORMATION
  Report Type: 
  Country: None (occurrence: None)
  Receive Date: 20060105
  Receipt Date: 20060102
  Transmission Date: 20060701
  Serious: Yes (Other)
  Sender: FDA-Public Use
  Company Number: 2006SE00036

PATIENT
  Age: 28863 Day
  Sex: Male

DRUGS (2)
  1. BLOPRESS TABLETS 4 [Suspect]
     Indication: HYPERTENSION
     Route: 048
     Dates: start: 20051206, end: 20051207
  2. ADALAT [Concomitant]
     Indication: HYPERTENSION
     Route: 048
     Dates: start: 20050502

REACTIONS (2)
  - BLOOD PRESSURE INCREASED [None]
  - DIPLOPIA [None]
